FAERS Safety Report 18179050 (Version 1)
Quarter: 2020Q3

REPORT INFORMATION
  Report Type: Report from Study
  Country: KE (occurrence: KE)
  Receive Date: 20200820
  Receipt Date: 20200820
  Transmission Date: 20201103
  Serious: Yes (Hospitalization, Other)
  Sender: FDA-Public Use
  Company Number: KE-SEATTLE GENETICS-2019SGN02309

PATIENT
  Sex: Male

DRUGS (1)
  1. BRENTUXIMAB VEDOTIN [Suspect]
     Active Substance: BRENTUXIMAB VEDOTIN
     Indication: HODGKIN^S DISEASE
     Dosage: 49 MILLIGRAM
     Route: 042
     Dates: start: 20190816, end: 20200422

REACTIONS (6)
  - Haemoglobin decreased [Unknown]
  - Off label use [Unknown]
  - Anaemia [Unknown]
  - Product prescribing issue [Unknown]
  - Hodgkin^s disease [Unknown]
  - Swelling [Unknown]
